FAERS Safety Report 25524732 (Version 1)
Quarter: 2025Q3

REPORT INFORMATION
  Report Type: Spontaneous
  Country: US (occurrence: None)
  Receive Date: 20250706
  Receipt Date: 20250706
  Transmission Date: 20251020
  Serious: Yes (Disabling)
  Sender: FDA-CTU
  Company Number: None

PATIENT
  Age: 57 Year
  Sex: Male
  Weight: 72 kg

DRUGS (4)
  1. CIPROFLOXACIN [Suspect]
     Active Substance: CIPROFLOXACIN
     Indication: Gastrointestinal infection
     Dosage: OTHER QUANTITY : 1 TABLET(S);?FREQUENCY : EVERY 12 HOURS;?OTHER ROUTE : MY MOUTH;?
     Route: 050
     Dates: start: 20250627, end: 20250628
  2. CIPROFLOXACIN [Suspect]
     Active Substance: CIPROFLOXACIN
     Indication: Gastroenteritis viral
  3. RABEPRAZOLE [Concomitant]
     Active Substance: RABEPRAZOLE
  4. B12/D [Concomitant]

REACTIONS (11)
  - Arthralgia [None]
  - Myalgia [None]
  - Tendon pain [None]
  - Neuralgia [None]
  - Muscle twitching [None]
  - Muscular weakness [None]
  - Muscular weakness [None]
  - Insomnia [None]
  - Nightmare [None]
  - Brain fog [None]
  - Feeling of body temperature change [None]

NARRATIVE: CASE EVENT DATE: 20250627
